FAERS Safety Report 5920223-X (Version None)
Quarter: 2008Q4

REPORT INFORMATION
  Report Type: 
  Country: None (occurrence: None)
  Receive Date: 20081016
  Receipt Date: 20080220
  Transmission Date: 20090506
  Serious: No
  Sender: FDA-Public Use
  Company Number: A0710775A

PATIENT
  Age: 10 Year
  Sex: Male

DRUGS (1)
  1. CEFTIN [Suspect]
     Indication: DRUG USE FOR UNKNOWN INDICATION
     Dosage: 1TSP TWICE PER DAY
     Route: 048

REACTIONS (3)
  - DIARRHOEA [None]
  - NAUSEA [None]
  - PRODUCT QUALITY ISSUE [None]
